FAERS Safety Report 12758462 (Version 1)
Quarter: 2016Q3

REPORT INFORMATION
  Report Type: Spontaneous
  Country: US (occurrence: US)
  Receive Date: 20160917
  Receipt Date: 20160917
  Transmission Date: 20161109
  Serious: No
  Sender: FDA-Public Use
  Company Number: None

PATIENT
  Age: 39 Year
  Sex: Female
  Weight: 96.75 kg

DRUGS (5)
  1. PROBIOTICS [Concomitant]
     Active Substance: PROBIOTICS NOS
  2. FISH OIL [Concomitant]
     Active Substance: FISH OIL
  3. HAIR AND NAIL GUMMIE [Concomitant]
  4. HYOSCYAMINE 0.125MG [Suspect]
     Active Substance: HYOSCYAMINE
     Indication: GALLBLADDER DISORDER
     Route: 060
     Dates: start: 20160909, end: 20160916
  5. CALCIUM [Concomitant]
     Active Substance: CALCIUM

REACTIONS (4)
  - Chest pain [None]
  - Palpitations [None]
  - Feeling hot [None]
  - Anxiety [None]

NARRATIVE: CASE EVENT DATE: 20160916
